FAERS Safety Report 6305477-2 (Version None)
Quarter: 2009Q3

REPORT INFORMATION
  Report Type: 
  Country: None (occurrence: None)
  Receive Date: 20090811
  Receipt Date: 20090805
  Transmission Date: 20100115
  Serious: Yes (Death)
  Sender: FDA-Public Use
  Company Number: US-CELGENEUS-163-20785-09041522

PATIENT
  Sex: Male

DRUGS (1)
  1. THALOMID [Suspect]
     Indication: MULTIPLE MYELOMA
     Route: 048
     Dates: start: 20090310, end: 20090301

REACTIONS (4)
  - BONE NEOPLASM MALIGNANT [None]
  - INFECTION [None]
  - MULTIPLE MYELOMA [None]
  - STOMATITIS [None]
